FAERS Safety Report 13569261 (Version 1)
Quarter: 2017Q2

REPORT INFORMATION
  Report Type: Spontaneous
  Country: US (occurrence: US)
  Receive Date: 20170522
  Receipt Date: 20170522
  Transmission Date: 20170830
  Serious: Yes (Other)
  Sender: FDA-Public Use
  Company Number: US-DRREDDYS-USA/USA/16/0085160

PATIENT
  Age: 9 Year
  Sex: Female

DRUGS (7)
  1. CARBOPLATIN. [Concomitant]
     Active Substance: CARBOPLATIN
     Indication: GANGLIONEUROBLASTOMA
     Route: 065
  2. MELPHALAN. [Concomitant]
     Active Substance: MELPHALAN
     Indication: GANGLIONEUROBLASTOMA
     Route: 065
  3. ETOPOSIDE. [Concomitant]
     Active Substance: ETOPOSIDE
     Indication: GANGLIONEUROBLASTOMA
     Route: 065
  4. ISOTRETINOIN NOT OTHERWISE SPECIFIED [Suspect]
     Active Substance: ISOTRETINOIN
     Indication: GANGLIONEUROBLASTOMA
     Dosage: SIX COURSES  WITH CUMULATIVE DOSE OF 13,440 MG/M2
     Route: 065
  5. CYCLOPHOSPHAMIDE. [Concomitant]
     Active Substance: CYCLOPHOSPHAMIDE
     Indication: GANGLIONEUROBLASTOMA
     Route: 065
  6. TOPOTECAN [Concomitant]
     Active Substance: TOPOTECAN HYDROCHLORIDE
     Indication: GANGLIONEUROBLASTOMA
     Route: 065
  7. FENRETINIDE [Suspect]
     Active Substance: FENRETINIDE
     Indication: GANGLIONEUROBLASTOMA
     Route: 048

REACTIONS (1)
  - Epiphyses premature fusion [Unknown]
